FAERS Safety Report 11292310 (Version 1)
Quarter: 2015Q3

REPORT INFORMATION
  Report Type: Spontaneous
  Country: US (occurrence: None)
  Receive Date: 20150721
  Receipt Date: 20150721
  Transmission Date: 20151125
  Serious: Yes (Life-Threatening, Hospitalization)
  Sender: FDA-Public Use
  Company Number: None

PATIENT
  Age: 62 Year
  Sex: Male

DRUGS (1)
  1. IBUPROFEN. [Suspect]
     Active Substance: IBUPROFEN
     Indication: PAIN
     Route: 048
     Dates: start: 20100504, end: 20100504

REACTIONS (8)
  - Bradycardia [None]
  - Hypotension [None]
  - Wheezing [None]
  - Chest discomfort [None]
  - Hypoaesthesia oral [None]
  - Presyncope [None]
  - Lip swelling [None]
  - Anaphylactic reaction [None]

NARRATIVE: CASE EVENT DATE: 20100504
